FAERS Safety Report 7737503-8 (Version None)
Quarter: 2011Q3

REPORT INFORMATION
  Report Type: 
  Country: None (occurrence: None)
  Receive Date: 20110908
  Receipt Date: 20110901
  Transmission Date: 20111222
  Serious: Yes (Other)
  Sender: FDA-Public Use
  Company Number: RU-VIIV HEALTHCARE LIMITED-B0745041A

PATIENT
  Sex: Female
  Weight: 68 kg

DRUGS (1)
  1. ZIAGEN [Suspect]
     Indication: HIV INFECTION
     Dosage: 600MG PER DAY
     Route: 048
     Dates: start: 20110630, end: 20110714

REACTIONS (4)
  - HYPERSENSITIVITY [None]
  - VOMITING [None]
  - PRURITUS [None]
  - RASH [None]
